FAERS Safety Report 26103288 (Version 1)
Quarter: 2025Q4

REPORT INFORMATION
  Report Type: Spontaneous
  Country: US (occurrence: US)
  Receive Date: 20251129
  Receipt Date: 20251129
  Transmission Date: 20260118
  Serious: No
  Sender: IBSA INSTITUT BIOCHIMIQUE
  Company Number: US-IBSA PHARMA INC.-2024IBS000504

PATIENT

DRUGS (5)
  1. TIROSINT [Suspect]
     Active Substance: LEVOTHYROXINE SODIUM
     Indication: Thyroid hormone replacement therapy
     Dosage: 100 MICROGRAM, QAM
     Dates: start: 20200210
  2. TIROSINT [Suspect]
     Active Substance: LEVOTHYROXINE SODIUM
     Dosage: 112 MICROGRAM;
     Dates: start: 20200210
  3. VITAMINS NOS [Concomitant]
     Active Substance: VITAMINS
     Indication: Product used for unknown indication
  4. FIBER THERAPY (CALCIUM POLYCARBOPHIL) [Concomitant]
     Active Substance: CALCIUM POLYCARBOPHIL
     Indication: Product used for unknown indication
  5. METFORMIN [Concomitant]
     Active Substance: METFORMIN HYDROCHLORIDE
     Indication: Product used for unknown indication
     Dosage: 500 MILLIGRAM
     Route: 065

REACTIONS (1)
  - Blood thyroid stimulating hormone increased [Unknown]
